FAERS Safety Report 7435583-0 (Version None)
Quarter: 2011Q2

REPORT INFORMATION
  Report Type: 
  Country: None (occurrence: None)
  Receive Date: 20110425
  Receipt Date: 20110414
  Transmission Date: 20111010
  Serious: Yes (Other)
  Sender: FDA-Public Use
  Company Number: SE-JNJFOC-20110205487

PATIENT
  Age: 55 Year
  Sex: Female

DRUGS (6)
  1. LEVOTHYROXINE SODIUM [Concomitant]
     Indication: PRODUCT USED FOR UNKNOWN INDICATION
  2. SULFASALAZINE [Concomitant]
     Indication: PRODUCT USED FOR UNKNOWN INDICATION
  3. SIMPONI [Suspect]
     Indication: RHEUMATOID ARTHRITIS
     Route: 042
  4. OMEPRAZOLE [Concomitant]
     Indication: PRODUCT USED FOR UNKNOWN INDICATION
  5. ALVEDON [Concomitant]
     Indication: PRODUCT USED FOR UNKNOWN INDICATION
  6. SIMPONI [Suspect]
     Route: 042

REACTIONS (8)
  - DIZZINESS [None]
  - HYPOAESTHESIA FACIAL [None]
  - EXFOLIATIVE RASH [None]
  - FUNGAL INFECTION [None]
  - ORAL VIRAL INFECTION [None]
  - ARTERIOSPASM CORONARY [None]
  - HEADACHE [None]
  - NAUSEA [None]
